FAERS Safety Report 25721894 (Version 2)
Quarter: 2025Q4

REPORT INFORMATION
  Report Type: Spontaneous
  Country: US (occurrence: US)
  Receive Date: 20250825
  Receipt Date: 20251203
  Transmission Date: 20260118
  Serious: No
  Sender: CHATTEM
  Company Number: US-OPELLA-2023OHG010807

PATIENT
  Sex: Female

DRUGS (1)
  1. NASACORT ALLERGY 24HR [Suspect]
     Active Substance: TRIAMCINOLONE ACETONIDE
     Indication: Product used for unknown indication
     Dosage: STRENGTH 55 UG/DOSE

REACTIONS (3)
  - Somnolence [Unknown]
  - Paranasal sinus discomfort [Unknown]
  - Nasal dryness [Unknown]
